FAERS Safety Report 7955002-5 (Version None)
Quarter: 2011Q4

REPORT INFORMATION
  Report Type: 
  Country: None (occurrence: None)
  Receive Date: 20111202
  Receipt Date: 20111124
  Transmission Date: 20120403
  Serious: Yes (Other)
  Sender: FDA-Public Use
  Company Number: PHHY2011JP103434

PATIENT
  Age: 48 Year
  Sex: Male

DRUGS (3)
  1. CYTARABINE [Suspect]
     Indication: EPSTEIN-BARR VIRUS INFECTION
     Dosage: 3 G/M2 EVERY 12 H ON DAYS 1 AND 2
  2. ELSPAR [Suspect]
     Indication: EPSTEIN-BARR VIRUS INFECTION
     Dosage: 6,000 U/M2 ON DAY 2
  3. PREDNISOLONE [Suspect]
     Indication: EPSTEIN-BARR VIRUS INFECTION
     Dosage: 30 MG/M2 ON DAYS 1AND 2

REACTIONS (3)
  - PERICARDIAL EFFUSION [None]
  - GUILLAIN-BARRE SYNDROME [None]
  - PYREXIA [None]
